FAERS Safety Report 6750502-8 (Version None)
Quarter: 2010Q2

REPORT INFORMATION
  Report Type: 
  Country: None (occurrence: None)
  Receive Date: 20100527
  Receipt Date: 20100512
  Transmission Date: 20101027
  Serious: Yes (Hospitalization)
  Sender: FDA-Public Use
  Company Number: 011941

PATIENT
  Sex: Female

DRUGS (16)
  1. ROTIGOTINE (ROTIGOTINE) [Suspect]
     Indication: PARKINSON'S DISEASE
     Dosage: (4.5 MG QD), (9 MG QD), (13.5 MG QD), (18 MG QD), (22.5 MG QD), (27 MG QD), (31.5 MG QD), (36 MG QD)
     Dates: start: 20100121, end: 20100126
  2. ROTIGOTINE (ROTIGOTINE) [Suspect]
     Indication: PARKINSON'S DISEASE
     Dosage: (4.5 MG QD), (9 MG QD), (13.5 MG QD), (18 MG QD), (22.5 MG QD), (27 MG QD), (31.5 MG QD), (36 MG QD)
     Dates: start: 20100127, end: 20100202
  3. ROTIGOTINE (ROTIGOTINE) [Suspect]
     Indication: PARKINSON'S DISEASE
     Dosage: (4.5 MG QD), (9 MG QD), (13.5 MG QD), (18 MG QD), (22.5 MG QD), (27 MG QD), (31.5 MG QD), (36 MG QD)
     Dates: start: 20100203, end: 20100209
  4. ROTIGOTINE (ROTIGOTINE) [Suspect]
     Indication: PARKINSON'S DISEASE
     Dosage: (4.5 MG QD), (9 MG QD), (13.5 MG QD), (18 MG QD), (22.5 MG QD), (27 MG QD), (31.5 MG QD), (36 MG QD)
     Dates: start: 20100210, end: 20100216
  5. ROTIGOTINE (ROTIGOTINE) [Suspect]
     Indication: PARKINSON'S DISEASE
     Dosage: (4.5 MG QD), (9 MG QD), (13.5 MG QD), (18 MG QD), (22.5 MG QD), (27 MG QD), (31.5 MG QD), (36 MG QD)
     Dates: start: 20100217, end: 20100223
  6. ROTIGOTINE (ROTIGOTINE) [Suspect]
     Indication: PARKINSON'S DISEASE
     Dosage: (4.5 MG QD), (9 MG QD), (13.5 MG QD), (18 MG QD), (22.5 MG QD), (27 MG QD), (31.5 MG QD), (36 MG QD)
     Dates: start: 20100224, end: 20100303
  7. ROTIGOTINE (ROTIGOTINE) [Suspect]
     Indication: PARKINSON'S DISEASE
     Dosage: (4.5 MG QD), (9 MG QD), (13.5 MG QD), (18 MG QD), (22.5 MG QD), (27 MG QD), (31.5 MG QD), (36 MG QD)
     Dates: start: 20100304, end: 20100310
  8. ROTIGOTINE (ROTIGOTINE) [Suspect]
     Indication: PARKINSON'S DISEASE
     Dosage: (4.5 MG QD), (9 MG QD), (13.5 MG QD), (18 MG QD), (22.5 MG QD), (27 MG QD), (31.5 MG QD), (36 MG QD)
     Dates: start: 20100311, end: 20100506
  9. CARBIDOPA + LEVODOPA [Concomitant]
  10. TRIHEXYPHENIDYL HCL [Concomitant]
  11. SENNOSIDE A+B [Concomitant]
  12. LOXOPROFEN SODIUM [Concomitant]
  13. FELBINAC [Concomitant]
  14. FLUOCINONIDE [Concomitant]
  15. BENIDIPINE HYDROCHLORIDE [Concomitant]
  16. ATENOLOL [Concomitant]

REACTIONS (5)
  - CONDITION AGGRAVATED [None]
  - PARKINSON'S DISEASE [None]
  - PERIARTHRITIS [None]
  - POSTURING [None]
  - ROTATOR CUFF SYNDROME [None]
